FAERS Safety Report 17816703 (Version 1)
Quarter: 2020Q2

REPORT INFORMATION
  Report Type: Report from Study
  Country: US (occurrence: US)
  Receive Date: 20200522
  Receipt Date: 20200522
  Transmission Date: 20200714
  Serious: Yes (Death)
  Sender: FDA-Public Use
  Company Number: US-ADAMAS PHARMA, LLC-2020ADA01203

PATIENT
  Sex: Male

DRUGS (17)
  1. LEVETIRACETAM. [Concomitant]
     Active Substance: LEVETIRACETAM
  2. MECLIZINE [Concomitant]
     Active Substance: MECLIZINE HYDROCHLORIDE
  3. AMIODARONE [Concomitant]
     Active Substance: AMIODARONE
  4. FEROSUL [Concomitant]
     Active Substance: FERROUS SULFATE
  5. LACTULOSE. [Concomitant]
     Active Substance: LACTULOSE
  6. LOSARTAN. [Concomitant]
     Active Substance: LOSARTAN
  7. METFORMIN [Concomitant]
     Active Substance: METFORMIN HYDROCHLORIDE
  8. GOCOVRI [Suspect]
     Active Substance: AMANTADINE
     Indication: DYSKINESIA
     Dosage: 274 MG, 1X/DAY, AT BEDTIME
     Route: 048
     Dates: start: 20200416, end: 2020
  9. ALLOPURINOL. [Concomitant]
     Active Substance: ALLOPURINOL
  10. BUPROPION. [Concomitant]
     Active Substance: BUPROPION
  11. DILTIAZEM. [Concomitant]
     Active Substance: DILTIAZEM
  12. HYDRALAZINE [Concomitant]
     Active Substance: HYDRALAZINE HYDROCHLORIDE
  13. AZILECT [Concomitant]
     Active Substance: RASAGILINE MESYLATE
  14. METOPROLOL. [Concomitant]
     Active Substance: METOPROLOL
  15. ATORVASTATIN [Concomitant]
     Active Substance: ATORVASTATIN
  16. CARBIDOPA/LEVODOPA [Concomitant]
     Active Substance: CARBIDOPA\LEVODOPA
  17. CHLORTHALIDONE. [Concomitant]
     Active Substance: CHLORTHALIDONE

REACTIONS (1)
  - Death [Fatal]

NARRATIVE: CASE EVENT DATE: 2020
